FAERS Safety Report 8922037 (Version 1)
Quarter: 2012Q4

REPORT INFORMATION
  Report Type: 
  Country: US (occurrence: US)
  Receive Date: 20121123
  Receipt Date: 20121123
  Transmission Date: 20130627
  Serious: Yes (Hospitalization, Other)
  Sender: FDA-Public Use
  Company Number: PHHY2012US106253

PATIENT
  Sex: Female

DRUGS (1)
  1. METOPROLOL [Suspect]
     Dosage: 2 DF per day

REACTIONS (4)
  - Thrombosis [Recovered/Resolved]
  - Hypotension [Recovered/Resolved]
  - Dizziness [Recovered/Resolved]
  - Urine odour abnormal [Recovered/Resolved]
